FAERS Safety Report 5699393-7 (Version None)
Quarter: 2008Q2

REPORT INFORMATION
  Report Type: 
  Country: None (occurrence: None)
  Receive Date: 20080407
  Receipt Date: 20080327
  Transmission Date: 20081010
  Serious: Yes (Other)
  Sender: FDA-Public Use
  Company Number: A0718013A

PATIENT
  Age: 33 Year
  Sex: Female

DRUGS (2)
  1. ALGINIC ACID + ALUMINIUM HYDROXIDE + MAGNESIUM CARBONATE TAB (ALGIN.AC [Suspect]
     Indication: DRUG USE FOR UNKNOWN INDICATION
  2. FAMOTIDINE [Concomitant]

REACTIONS (1)
  - HEPATIC ENZYME INCREASED [None]
